FAERS Safety Report 4635002-3 (Version None)
Quarter: 2005Q2

REPORT INFORMATION
  Report Type: 
  Country: None (occurrence: None)
  Receive Date: 20050414
  Receipt Date: 20050404
  Transmission Date: 20051028
  Serious: Yes (Hospitalization)
  Sender: FDA-Public Use
  Company Number: 200511023JP

PATIENT
  Age: 88 Year
  Sex: Female

DRUGS (9)
  1. KETEK [Suspect]
     Indication: BRONCHITIS
     Route: 048
     Dates: start: 20050314
  2. THEO-DUR [Concomitant]
     Route: 048
  3. CODEINE PHOSPHATE [Concomitant]
     Route: 048
  4. MEDICON [Concomitant]
     Route: 048
  5. MUCODYNE [Concomitant]
     Route: 048
  6. MUCOSOLVAN [Concomitant]
     Route: 048
  7. SPIROPENT [Concomitant]
     Route: 048
  8. DALACIN [Concomitant]
     Route: 041
     Dates: start: 20050314
  9. NEOPHYLLIN [Concomitant]
     Route: 041
     Dates: start: 20050314

REACTIONS (4)
  - DELIRIUM [None]
  - LOSS OF CONSCIOUSNESS [None]
  - MEMORY IMPAIRMENT [None]
  - PNEUMONIA [None]
